FAERS Safety Report 7775179-4 (Version None)
Quarter: 2011Q3

REPORT INFORMATION
  Report Type: 
  Country: None (occurrence: None)
  Receive Date: 20110923
  Receipt Date: 20110913
  Transmission Date: 20111222
  Serious: Yes (Hospitalization)
  Sender: FDA-Public Use
  Company Number: CA-GENENTECH-292636

PATIENT
  Sex: Male

DRUGS (6)
  1. LIPITOR [Concomitant]
     Indication: PRODUCT USED FOR UNKNOWN INDICATION
  2. SYNTHROID [Concomitant]
     Indication: PRODUCT USED FOR UNKNOWN INDICATION
  3. XOLAIR [Suspect]
     Dosage: 375 MG, Q2W
     Route: 058
     Dates: end: 20110714
  4. XOLAIR [Suspect]
     Dosage: 375 MG, Q2W
     Dates: start: 20091008
  5. DIOVAN [Concomitant]
     Indication: PRODUCT USED FOR UNKNOWN INDICATION
     Dosage: 80 MG, UNK
  6. XOLAIR [Suspect]
     Indication: ASTHMA
     Dosage: 375 MG, Q2W
     Route: 058
     Dates: start: 20070927

REACTIONS (3)
  - BLOOD PRESSURE DIASTOLIC DECREASED [None]
  - DIVERTICULITIS [None]
  - POLYPECTOMY [None]
